FAERS Safety Report 5746374-0 (Version None)
Quarter: 2008Q2

REPORT INFORMATION
  Report Type: 
  Country: None (occurrence: None)
  Receive Date: 20080520
  Receipt Date: 20080520
  Transmission Date: 20081010
  Serious: Yes (Life-Threatening, Other)
  Sender: FDA-Public Use
  Company Number: None

PATIENT
  Age: 75 Year
  Sex: Female
  Weight: 47.1741 kg

DRUGS (1)
  1. DIGOXIN [Suspect]
     Dates: start: 20080101, end: 20080501

REACTIONS (8)
  - ASTHENIA [None]
  - DIZZINESS [None]
  - HEADACHE [None]
  - HYPOAESTHESIA [None]
  - MUSCLE TWITCHING [None]
  - NAUSEA [None]
  - PYREXIA [None]
  - VISION BLURRED [None]
